FAERS Safety Report 10522221 (Version 4)
Quarter: 2014Q4

REPORT INFORMATION
  Report Type: Spontaneous
  Country: GB (occurrence: GB)
  Receive Date: 20141016
  Receipt Date: 20141112
  Transmission Date: 20150528
  Serious: Yes (Other)
  Sender: FDA-Public Use
  Company Number: GB-PFIZER INC-2014071466

PATIENT
  Age: 59 Year
  Sex: Female
  Weight: 66 kg

DRUGS (5)
  1. LOSARTAN [Concomitant]
     Active Substance: LOSARTAN
  2. ELLESTE-SOLO [Concomitant]
     Dosage: UNK
  3. LISINOPRIL. [Concomitant]
     Active Substance: LISINOPRIL
     Dosage: UNK
  4. AMLODIPINE BESILATE [Suspect]
     Active Substance: AMLODIPINE BESYLATE
     Indication: HYPERTENSION
     Dosage: 5 MG, UNK
     Route: 048
     Dates: start: 20131110, end: 20140130
  5. BENDROFLUAZIDE [Concomitant]
     Active Substance: BENDROFLUMETHIAZIDE
     Dosage: UNK

REACTIONS (9)
  - Skin plaque [Unknown]
  - Wheezing [Recovered/Resolved]
  - Rash generalised [Not Recovered/Not Resolved]
  - Papule [Unknown]
  - Eczema [Unknown]
  - Oedema peripheral [Unknown]
  - Vasculitis [Unknown]
  - Pruritus [Not Recovered/Not Resolved]
  - Dermatitis [Unknown]

NARRATIVE: CASE EVENT DATE: 20140130
